FAERS Safety Report 20348878 (Version 1)
Quarter: 2022Q1

REPORT INFORMATION
  Report Type: Spontaneous
  Country: TR (occurrence: TR)
  Receive Date: 20220119
  Receipt Date: 20220119
  Transmission Date: 20220423
  Serious: Yes (Other)
  Sender: FDA-Public Use
  Company Number: TR-SUN PHARMACEUTICAL INDUSTRIES LTD-2020RR-267431

PATIENT
  Age: 47 Year
  Sex: Male

DRUGS (11)
  1. AMISULPRIDE [Suspect]
     Active Substance: AMISULPRIDE
     Indication: Obsessive-compulsive personality disorder
     Dosage: 200 MILLIGRAM, DAILY
     Route: 065
  2. AMISULPRIDE [Suspect]
     Active Substance: AMISULPRIDE
     Indication: Depression
  3. BACLOFEN [Suspect]
     Active Substance: BACLOFEN
     Indication: Obsessive-compulsive disorder
     Dosage: 30 MILLIGRAM, DAILY
     Route: 065
  4. PAROXETINE [Suspect]
     Active Substance: PAROXETINE
     Indication: Obsessive-compulsive disorder
     Dosage: 30 MILLIGRAM, DAILY
     Route: 065
  5. PAROXETINE [Suspect]
     Active Substance: PAROXETINE
     Indication: Depression
  6. ARIPIPRAZOLE [Suspect]
     Active Substance: ARIPIPRAZOLE
     Indication: Obsessive-compulsive disorder
     Dosage: 5 MILLIGRAM, DAILY
     Route: 065
  7. ARIPIPRAZOLE [Suspect]
     Active Substance: ARIPIPRAZOLE
     Indication: Depression
  8. BIPERIDEN [Concomitant]
     Active Substance: BIPERIDEN
     Indication: Obsessive-compulsive disorder
     Dosage: UNK
     Route: 065
  9. BIPERIDEN [Concomitant]
     Active Substance: BIPERIDEN
     Indication: Depression
  10. BUSPIRONE [Concomitant]
     Active Substance: BUSPIRONE HYDROCHLORIDE
     Indication: Obsessive-compulsive disorder
     Dosage: 20 MILLIGRAM, DAILY
     Route: 065
  11. BUSPIRONE [Concomitant]
     Active Substance: BUSPIRONE HYDROCHLORIDE
     Indication: Depression

REACTIONS (3)
  - Pleurothotonus [Unknown]
  - Drug ineffective [Unknown]
  - Condition aggravated [Unknown]
